FAERS Safety Report 8852227 (Version 1)
Quarter: 2012Q4

REPORT INFORMATION
  Report Type: 
  Country: US (occurrence: US)
  Receive Date: 20121022
  Receipt Date: 20121022
  Transmission Date: 20130627
  Serious: Yes (Other)
  Sender: FDA-Public Use
  Company Number: US-PFIZER INC-2009236135

PATIENT
  Age: 62 Year
  Sex: Female
  Weight: 86 kg

DRUGS (11)
  1. PROVERA [Suspect]
     Indication: HORMONE REPLACEMENT THERAPY
     Dosage: 10 mg, UNK
     Route: 048
     Dates: start: 199101, end: 199202
  2. PROVERA [Suspect]
     Dosage: 2.5 mg, UNK
     Route: 048
     Dates: start: 199303, end: 199308
  3. PREMPRO [Suspect]
     Indication: HORMONE REPLACEMENT THERAPY
     Dosage: 0.625/2.5mg
     Route: 048
     Dates: start: 199604, end: 199902
  4. PREMARIN [Suspect]
     Indication: HORMONE REPLACEMENT THERAPY
     Dosage: 0.9 mg, UNK
     Route: 048
     Dates: start: 199101, end: 199107
  5. PREMARIN [Suspect]
     Dosage: 0.625 mg, UNK
     Route: 048
     Dates: start: 199107, end: 199201
  6. PREMARIN [Suspect]
     Dosage: 0.625 mg, UNK
     Route: 048
     Dates: start: 199303, end: 199410
  7. PREMARIN [Suspect]
     Dosage: 1.25 mg, UNK
     Route: 048
     Dates: start: 199902, end: 200212
  8. CYCRIN [Suspect]
     Indication: HORMONE REPLACEMENT THERAPY
     Dosage: 2.5 mg, UNK
     Route: 048
     Dates: start: 199309, end: 199603
  9. CYCRIN [Suspect]
     Dosage: 2.5 mg, UNK
     Route: 048
     Dates: start: 1999
  10. MEDROXYPROGESTERONE ACETATE [Suspect]
     Indication: HORMONE REPLACEMENT THERAPY
     Dosage: 2.5 mg, UNK
     Route: 048
     Dates: start: 20000223, end: 20021009
  11. ESTRADERM [Suspect]
     Indication: HORMONE REPLACEMENT THERAPY
     Dosage: 0.1 mg, UNK
     Dates: start: 199212, end: 199212

REACTIONS (1)
  - Breast cancer female [Unknown]
